FAERS Safety Report 12454118 (Version 1)
Quarter: 2016Q2

REPORT INFORMATION
  Report Type: Spontaneous
  Country: US (occurrence: US)
  Receive Date: 20160610
  Receipt Date: 20160610
  Transmission Date: 20160815
  Serious: Yes (Other)
  Sender: FDA-Public Use
  Company Number: US-BRISTOL-MYERS SQUIBB COMPANY-BMS-2016-044381

PATIENT
  Sex: Female

DRUGS (2)
  1. YERVOY [Suspect]
     Active Substance: IPILIMUMAB
     Indication: MALIGNANT MELANOMA
     Dosage: 3 MG/KG, UNK
     Route: 042
     Dates: start: 20160512
  2. YERVOY [Suspect]
     Active Substance: IPILIMUMAB
     Dosage: 10 UNK, UNK
     Route: 042

REACTIONS (2)
  - Infusion related reaction [Recovered/Resolved]
  - Prescribed overdose [Unknown]
